FAERS Safety Report 13085743 (Version 1)
Quarter: 2017Q1

REPORT INFORMATION
  Report Type: Spontaneous
  Country: DE (occurrence: DE)
  Receive Date: 20170104
  Receipt Date: 20170104
  Transmission Date: 20170428
  Serious: Yes (Other)
  Sender: FDA-Public Use
  Company Number: DE-PURDUE-DEU-2016-0018510

PATIENT
  Age: 52 Year
  Sex: Male

DRUGS (2)
  1. TARGIN [Suspect]
     Active Substance: NALOXONE HYDROCHLORIDE\OXYCODONE HYDROCHLORIDE
     Indication: PAIN
     Dosage: 10/5 MG, BID
     Route: 065
     Dates: start: 201606
  2. MIRTAZAPIN [Suspect]
     Active Substance: MIRTAZAPINE
     Indication: PRODUCT USED FOR UNKNOWN INDICATION
     Dosage: UNK
     Route: 065
     Dates: start: 201606

REACTIONS (4)
  - Loose tooth [Recovered/Resolved with Sequelae]
  - Dental caries [Unknown]
  - Toothache [Unknown]
  - Dry mouth [Unknown]
